FAERS Safety Report 21863716 (Version 2)
Quarter: 2023Q1

REPORT INFORMATION
  Report Type: Spontaneous
  Country: US (occurrence: US)
  Receive Date: 20230116
  Receipt Date: 20230126
  Transmission Date: 20230417
  Serious: No
  Sender: FDA-Public Use
  Company Number: US-MTPC-MTDA2023-0000161

PATIENT
  Sex: Male

DRUGS (2)
  1. RADICAVA [Suspect]
     Active Substance: EDARAVONE
     Indication: Amyotrophic lateral sclerosis
     Dosage: 105 MILLIGRAM
     Route: 048
     Dates: start: 20221226
  2. RADICAVA [Suspect]
     Active Substance: EDARAVONE
     Indication: Amyotrophic lateral sclerosis
     Dosage: 105 MILLIGRAM
     Route: 048
     Dates: start: 20221226

REACTIONS (3)
  - Balance disorder [Recovering/Resolving]
  - Muscular weakness [Recovering/Resolving]
  - Headache [Recovered/Resolved]
